FAERS Safety Report 5187987-7 (Version None)
Quarter: 2006Q4

REPORT INFORMATION
  Report Type: 
  Country: None (occurrence: None)
  Receive Date: 20061214
  Receipt Date: 20061214
  Transmission Date: 20070319
  Serious: Yes (Disabling, Other)
  Sender: FDA-Public Use
  Company Number: None

PATIENT
  Sex: Female
  Weight: 74.8435 kg

DRUGS (1)
  1. TOPAMAX [Suspect]
     Indication: HEADACHE
     Dosage: ONE TABLET ONCE DAILY PO
     Route: 048
     Dates: start: 20061029, end: 20061122

REACTIONS (3)
  - EYE PAIN [None]
  - RETINAL DISORDER [None]
  - VISION BLURRED [None]
